FAERS Safety Report 23471305 (Version 1)
Quarter: 2024Q1

REPORT INFORMATION
  Report Type: Spontaneous
  Country: DE (occurrence: None)
  Receive Date: 20240202
  Receipt Date: 20240202
  Transmission Date: 20240410
  Serious: Yes (Other)
  Sender: FDA-Public Use
  Company Number: 2024A024737

PATIENT
  Age: 45 Year
  Sex: Female

DRUGS (10)
  1. OSIMERTINIB [Suspect]
     Active Substance: OSIMERTINIB
     Indication: Non-small cell lung cancer
     Route: 048
     Dates: start: 201802
  2. OSIMERTINIB [Suspect]
     Active Substance: OSIMERTINIB
     Indication: Non-small cell lung cancer
     Route: 048
  3. ERLOTINIB [Concomitant]
     Active Substance: ERLOTINIB
     Dates: start: 201608
  4. ATEZOLIZUMAB [Concomitant]
     Active Substance: ATEZOLIZUMAB
     Dates: start: 201907
  5. BEVACIZUMAB [Concomitant]
     Active Substance: BEVACIZUMAB
     Dates: start: 201907
  6. PACLITAXEL [Concomitant]
     Active Substance: PACLITAXEL
     Dates: start: 201907
  7. CARBOPLATIN [Concomitant]
     Active Substance: CARBOPLATIN
     Dates: start: 201907
  8. PEMETREXED [Concomitant]
     Active Substance: PEMETREXED
  9. DOCETAXEL [Concomitant]
     Active Substance: DOCETAXEL\DOCETAXEL ANHYDROUS
     Dates: start: 202307
  10. RAMUCIRUMAB [Concomitant]
     Active Substance: RAMUCIRUMAB
     Dates: start: 202307

REACTIONS (3)
  - Malignant neoplasm progression [Unknown]
  - Drug resistance [Unknown]
  - Acquired gene mutation [Unknown]

NARRATIVE: CASE EVENT DATE: 20190501
